FAERS Safety Report 23602871 (Version 2)
Quarter: 2024Q1

REPORT INFORMATION
  Report Type: Report from Study
  Country: CA (occurrence: CA)
  Receive Date: 20240306
  Receipt Date: 20240319
  Transmission Date: 20240409
  Serious: Yes (Other)
  Sender: FDA-Public Use
  Company Number: CA-ABBVIE-5457280

PATIENT
  Age: 67 Year
  Sex: Male
  Weight: 77 kg

DRUGS (8)
  1. VENCLEXTA [Suspect]
     Active Substance: VENETOCLAX
     Indication: Plasma cell myeloma
     Dosage: FORM STRENGTH: 100 MG
     Route: 048
     Dates: start: 20231013, end: 20231013
  2. VENCLEXTA [Suspect]
     Active Substance: VENETOCLAX
     Indication: Plasma cell myeloma
     Dosage: FORM STRENGTH: 100 MG
     Route: 048
     Dates: start: 20231018
  3. VENCLEXTA [Suspect]
     Active Substance: VENETOCLAX
     Indication: Plasma cell myeloma
     Dosage: 100 MG TABLETS
     Route: 048
     Dates: start: 20231013, end: 20240224
  4. TEPLIZUMAB [Concomitant]
     Active Substance: TEPLIZUMAB
     Indication: Product used for unknown indication
  5. VALACYCLOVIR [Concomitant]
     Active Substance: VALACYCLOVIR HYDROCHLORIDE
     Indication: Product used for unknown indication
     Route: 048
     Dates: start: 20220622
  6. DEXAMETHASONE [Concomitant]
     Active Substance: DEXAMETHASONE
     Indication: Product used for unknown indication
     Route: 048
     Dates: start: 20231006
  7. CYCLOPHOSPHAMIDE [Concomitant]
     Active Substance: CYCLOPHOSPHAMIDE
     Indication: Product used for unknown indication
     Route: 048
     Dates: start: 20231006, end: 20240224
  8. BORTEZOMIB [Concomitant]
     Active Substance: BORTEZOMIB
     Indication: Product used for unknown indication
     Dosage: 1.5 MILLIGRAM
     Route: 058
     Dates: start: 20231006, end: 20240224

REACTIONS (15)
  - Plasma cell myeloma [Recovering/Resolving]
  - Vertebral column mass [Unknown]
  - Off label use [Unknown]
  - Blood lactate dehydrogenase increased [Unknown]
  - Tumour lysis syndrome [Recovered/Resolved]
  - Blood uric acid abnormal [Unknown]
  - Sinus tachycardia [Unknown]
  - Blood potassium increased [Unknown]
  - Vertebral column mass [Unknown]
  - Blood phosphorus increased [Unknown]
  - Blood phosphorus abnormal [Unknown]
  - Blood potassium abnormal [Unknown]
  - Pleural thickening [Unknown]
  - Vertebral lesion [Unknown]
  - Back pain [Unknown]

NARRATIVE: CASE EVENT DATE: 20231001
